FAERS Safety Report 5264415-4 (Version None)
Quarter: 2007Q1

REPORT INFORMATION
  Report Type: 
  Country: None (occurrence: None)
  Receive Date: 20070309
  Receipt Date: 20070301
  Transmission Date: 20070707
  Serious: Yes (Other)
  Sender: FDA-Public Use
  Company Number: 2007-005

PATIENT
  Age: 41 Year
  Sex: Female

DRUGS (1)
  1. PHYTONADIONE [Suspect]

REACTIONS (2)
  - DEVICE MALFUNCTION [None]
  - HAEMORRHAGE [None]
